FAERS Safety Report 19617934 (Version 1)
Quarter: 2021Q3

REPORT INFORMATION
  Report Type: Spontaneous
  Country: US (occurrence: US)
  Receive Date: 20210728
  Receipt Date: 20210728
  Transmission Date: 20211014
  Serious: Yes (Other)
  Sender: FDA-Public Use
  Company Number: US-SA-2021SA247698

PATIENT
  Age: 61 Year
  Sex: Male

DRUGS (2)
  1. ZANTAC [Suspect]
     Active Substance: RANITIDINE HYDROCHLORIDE
     Indication: DYSPEPSIA
     Dosage: 150 MG QD
     Dates: start: 1998
  2. ZANTAC [Suspect]
     Active Substance: RANITIDINE HYDROCHLORIDE
     Dosage: 300 MG QD
     Dates: end: 2013

REACTIONS (2)
  - Colorectal cancer stage III [Not Recovered/Not Resolved]
  - Lung carcinoma cell type unspecified stage II [Not Recovered/Not Resolved]

NARRATIVE: CASE EVENT DATE: 20190701
